FAERS Safety Report 23263079 (Version 1)
Quarter: 2023Q4

REPORT INFORMATION
  Report Type: Spontaneous
  Country: US (occurrence: US)
  Receive Date: 20231205
  Receipt Date: 20231205
  Transmission Date: 20240110
  Serious: Yes (Other)
  Sender: FDA-Public Use
  Company Number: US-ABBVIE-5525863

PATIENT
  Sex: Male

DRUGS (1)
  1. IMBRUVICA [Suspect]
     Active Substance: IBRUTINIB
     Indication: Product used for unknown indication
     Dosage: 1 TABLET BY MOUTH ONCE DAILY.  TABLET SHOULD BE TAKEN WITH A GLASS OF WATER.
     Route: 048

REACTIONS (1)
  - Cerebrovascular accident [Recovered/Resolved]
